FAERS Safety Report 7913605-8 (Version None)
Quarter: 2011Q4

REPORT INFORMATION
  Report Type: 
  Country: None (occurrence: None)
  Receive Date: 20111115
  Receipt Date: 20111109
  Transmission Date: 20120403
  Serious: No
  Sender: FDA-Public Use
  Company Number: US-PFIZER INC-2011276659

PATIENT
  Age: 94 Year
  Sex: Female
  Weight: 56.7 kg

DRUGS (1)
  1. NORVASC [Suspect]

REACTIONS (2)
  - SWELLING [None]
  - MALAISE [None]
